FAERS Safety Report 7225671-6 (Version None)
Quarter: 2011Q1

REPORT INFORMATION
  Report Type: 
  Country: None (occurrence: None)
  Receive Date: 20110113
  Receipt Date: 20101206
  Transmission Date: 20110831
  Serious: No
  Sender: FDA-Public Use
  Company Number: US-NOVEN-10US001421

PATIENT
  Sex: Female

DRUGS (21)
  1. AMBIEN [Concomitant]
     Indication: INSOMNIA
     Dosage: 10 MG, QD
     Route: 048
  2. OMNARIS NASAL SPRAY [Concomitant]
     Indication: HYPERSENSITIVITY
     Dosage: 1 DF, QD
  3. FENTANYL-100 [Concomitant]
     Dosage: 75 UG/HR Q3DAYS (EVEN DAYS)
     Route: 062
  4. CLONIDINE [Concomitant]
     Indication: HYPERTENSION
     Dosage: 0.1 MG, QD
     Route: 048
  5. PLAVIX [Concomitant]
     Dosage: 75 MG, QD
     Route: 048
  6. DEPO-ESTRADIOL [Concomitant]
     Indication: HORMONE REPLACEMENT THERAPY
     Dosage: 0.15 ML  2X PER YEAR
     Route: 050
  7. LIDOCAINE HYDROCHLORIDE IN PLASTIC CONTAINER [Concomitant]
     Indication: PAIN
     Dosage: 1 PATCH TID
     Route: 062
  8. ATERAX [Concomitant]
     Indication: ANGIOEDEMA
     Dosage: 25 MG, BID
     Route: 048
  9. ATERAX [Concomitant]
     Dosage: 50 MG, BEDTIME
     Route: 048
  10. CYCLOSPORINE [Concomitant]
     Indication: ANGIOEDEMA
     Dosage: 100 MG, QD
  11. VICODIN [Concomitant]
     Indication: PAIN
     Dosage: 0.5 TAB TID + PRN
     Route: 048
  12. A-MANTLE 3% CREAM [Concomitant]
     Indication: SUNBURN
     Dosage: TOPICALLY TO FACE ONCE/WEEK
     Route: 061
  13. ALLEGRA [Concomitant]
     Indication: SEASONAL ALLERGY
     Dosage: 1 DF, BID
     Route: 048
  14. DEPO-TESTOSTERONE [Concomitant]
     Indication: HORMONE REPLACEMENT THERAPY
     Dosage: 0.10 ML, EVERY 2 WK
     Route: 030
  15. FIORICET [Concomitant]
     Indication: MIGRAINE PROPHYLAXIS
     Dosage: 1 TAB  TID
     Route: 048
  16. PREVACID [Concomitant]
     Indication: GASTROOESOPHAGEAL REFLUX DISEASE
     Dosage: 30 MG, BID
     Route: 048
  17. PHENERGAN [Concomitant]
     Indication: NAUSEA
     Dosage: 25 MG, PRN
     Route: 048
  18. ZANAFLEX [Concomitant]
     Indication: MUSCLE SPASMS
     Dosage: 4 MG, PRN
     Route: 048
  19. FENTANYL-100 [Suspect]
     Indication: PAIN
     Dosage: 50 UG/HR Q3DAYS (ODD)
     Route: 062
     Dates: start: 20101101
  20. ZOFRAN [Concomitant]
     Indication: NAUSEA
     Dosage: 4 MG, PRN
     Route: 048
  21. STANOZOLOL [Concomitant]
     Indication: ANGIOEDEMA
     Dosage: 2 MG, QD
     Route: 048

REACTIONS (2)
  - DRUG ADMINISTRATION ERROR [None]
  - PRODUCT QUALITY ISSUE [None]
